FAERS Safety Report 4672657-1 (Version None)
Quarter: 2005Q2

REPORT INFORMATION
  Report Type: 
  Country: None (occurrence: None)
  Receive Date: 20050524
  Receipt Date: 20050329
  Transmission Date: 20051028
  Serious: Yes (Hospitalization, Disabling)
  Sender: FDA-Public Use
  Company Number: US-MERCK-0503USA05039

PATIENT
  Age: 69 Year
  Sex: Male
  Weight: 82 kg

DRUGS (2)
  1. ZOCOR [Suspect]
     Indication: BLOOD CHOLESTEROL INCREASED
     Route: 048
     Dates: start: 20050207, end: 20050301
  2. ZOCOR [Suspect]
     Indication: METABOLIC SYNDROME
     Route: 048
     Dates: start: 20050207, end: 20050301

REACTIONS (2)
  - COMPRESSION FRACTURE [None]
  - MYALGIA [None]
